FAERS Safety Report 23195389 (Version 1)
Quarter: 2023Q4

REPORT INFORMATION
  Report Type: Spontaneous
  Country: FR (occurrence: FR)
  Receive Date: 20231117
  Receipt Date: 20231117
  Transmission Date: 20240109
  Serious: Yes (Other)
  Sender: FDA-Public Use
  Company Number: None

PATIENT
  Age: 36 Year
  Sex: Male
  Weight: 74 kg

DRUGS (1)
  1. OFLOXACIN [Suspect]
     Active Substance: OFLOXACIN
     Indication: Orchitis
     Dosage: 2 DOSAGE FORMS DAILY; 200MG 2 TIMES A DAY FOR 14 DAYS
     Route: 065
     Dates: start: 20220202, end: 20220210

REACTIONS (8)
  - Hallucination [Recovered/Resolved]
  - Dyskinesia [Recovered/Resolved]
  - Tinnitus [Not Recovered/Not Resolved]
  - Anxiety [Recovering/Resolving]
  - Insomnia [Not Recovered/Not Resolved]
  - Arthralgia [Not Recovered/Not Resolved]
  - Negative thoughts [Recovering/Resolving]
  - Idiopathic environmental intolerance [Not Recovered/Not Resolved]

NARRATIVE: CASE EVENT DATE: 20220202
